FAERS Safety Report 5569181-0 (Version None)
Quarter: 2007Q4

REPORT INFORMATION
  Report Type: 
  Country: None (occurrence: None)
  Receive Date: 20071220
  Receipt Date: 20070820
  Transmission Date: 20080405
  Serious: No
  Sender: FDA-Public Use
  Company Number: A0673129A

PATIENT
  Sex: Male

DRUGS (1)
  1. AVODART [Suspect]
     Indication: DIHYDROTESTOSTERONE INCREASED
     Dosage: .5MG TWICE PER DAY
     Route: 048

REACTIONS (1)
  - URINE ODOUR ABNORMAL [None]
